FAERS Safety Report 6275806-7 (Version None)
Quarter: 2009Q3

REPORT INFORMATION
  Report Type: 
  Country: None (occurrence: None)
  Receive Date: 20090717
  Receipt Date: 20090706
  Transmission Date: 20100115
  Serious: Yes (Other)
  Sender: FDA-Public Use
  Company Number: 2009AP002724

PATIENT
  Age: 50 Year
  Sex: Male

DRUGS (4)
  1. CLOPIDOGREL BISULFATE [Suspect]
     Indication: CEREBROVASCULAR ACCIDENT
     Dosage: 75 MG; QD PO, 75 MG; TAB; PO; QD
     Route: 048
     Dates: start: 20090615, end: 20090703
  2. SIMVASTATIN [Concomitant]
  3. ASPIRIN [Concomitant]
  4. CILOSTAZOL [Concomitant]

REACTIONS (4)
  - GINGIVAL BLEEDING [None]
  - HAEMATOMA [None]
  - PRURITUS [None]
  - RASH GENERALISED [None]
